FAERS Safety Report 24722434 (Version 1)
Quarter: 2024Q4

REPORT INFORMATION
  Report Type: Spontaneous
  Country: US (occurrence: US)
  Receive Date: 20241211
  Receipt Date: 20241211
  Transmission Date: 20250114
  Serious: No
  Sender: PFIZER
  Company Number: US-PFIZER INC-202400246239

PATIENT
  Age: 65 Year
  Sex: Female

DRUGS (2)
  1. TUKYSA [Suspect]
     Active Substance: TUCATINIB
     Indication: Breast cancer female
     Dosage: TWO 150MG TABLETS, TWICE PER DAY / 150MG; 2 TABLETS TWICE DAILY./ 150MG; 2 TABLETS TWICE A DAY
     Route: 048
  2. KADCYLA [Suspect]
     Active Substance: ADO-TRASTUZUMAB EMTANSINE
     Indication: Breast cancer female
     Dosage: UNK

REACTIONS (3)
  - Hypersensitivity [Unknown]
  - Pain [Unknown]
  - Off label use [Unknown]
